FAERS Safety Report 9683757 (Version 1)
Quarter: 2013Q4

REPORT INFORMATION
  Report Type: Spontaneous
  Country: DE (occurrence: DE)
  Receive Date: 20131112
  Receipt Date: 20131112
  Transmission Date: 20140711
  Serious: Yes (Life-Threatening, Hospitalization)
  Sender: FDA-Public Use
  Company Number: DE-BRISTOL-MYERS SQUIBB COMPANY-19795210

PATIENT
  Age: 81 Year
  Sex: Female
  Weight: 70 kg

DRUGS (5)
  1. METFORMIN HCL [Suspect]
     Indication: TYPE 2 DIABETES MELLITUS
     Route: 048
     Dates: end: 20130908
  2. RAMIPRIL [Concomitant]
  3. SIMVASTATIN [Concomitant]
     Dosage: SIMVASTATIN 20MG?1DF: 0.5DF
  4. METOPROLOL [Concomitant]
     Dosage: 1DOSAGE FORM = 47.5 MG.
  5. DYAZIDE [Concomitant]
     Dosage: 1 DOSAGE FORM = 50/25 MG.

REACTIONS (2)
  - Renal failure acute [Recovering/Resolving]
  - Lactic acidosis [Recovering/Resolving]
